FAERS Safety Report 19437298 (Version 1)
Quarter: 2021Q2

REPORT INFORMATION
  Report Type: Spontaneous
  Country: JP (occurrence: JP)
  Receive Date: 20210619
  Receipt Date: 20210619
  Transmission Date: 20210717
  Serious: Yes (Hospitalization)
  Sender: FDA-Public Use
  Company Number: JP-JNJFOC-A-CH2016-147529

PATIENT
  Age: 47 Year
  Sex: Male
  Weight: 86 kg

DRUGS (52)
  1. UPTRAVI [Suspect]
     Active Substance: SELEXIPAG
     Dosage: 0.2 MG, QD
     Route: 048
     Dates: start: 20161226, end: 20170122
  2. UPTRAVI [Suspect]
     Active Substance: SELEXIPAG
     Dosage: 0.2 MG, BID
     Route: 048
     Dates: start: 20170123, end: 20170305
  3. STROCAIN [Concomitant]
     Active Substance: OXETHAZAINE
     Indication: NAUSEA
     Dosage: 5 MG, QD
     Dates: start: 20161220
  4. CARBOCISTEINE [Concomitant]
     Active Substance: CARBOCYSTEINE
     Indication: NASOPHARYNGITIS
     Dosage: 100 MG, QD
     Dates: start: 20170606
  5. RINDERON V [Concomitant]
     Active Substance: BETAMETHASONE VALERATE
     Indication: PROPHYLAXIS
     Dosage: 10 ML, QD
     Dates: start: 20180522
  6. UPTRAVI [Suspect]
     Active Substance: SELEXIPAG
     Dosage: 1.4 MG, QD
     Route: 048
     Dates: start: 20170627, end: 20170723
  7. UPTRAVI [Suspect]
     Active Substance: SELEXIPAG
     Dosage: 1.0 MG, BID
     Route: 048
     Dates: start: 20180122, end: 20180415
  8. STROCAIN [Concomitant]
     Active Substance: OXETHAZAINE
     Indication: GASTRIC ULCER
  9. UPTRAVI [Suspect]
     Active Substance: SELEXIPAG
     Dosage: 0.6 MG, BID
     Route: 048
     Dates: start: 20170529, end: 20170626
  10. UPTRAVI [Suspect]
     Active Substance: SELEXIPAG
     Dosage: 1.8 MG, QD
     Route: 048
     Dates: start: 20171023, end: 20180121
  11. AZUNOL [Concomitant]
     Indication: RASH
     Dosage: 20 MG, QD
     Dates: start: 20170221
  12. DEXALTIN [Concomitant]
     Active Substance: DEXAMETHASONE
     Indication: STOMATITIS
     Dosage: 15 G, QD
     Dates: start: 20180219, end: 2018
  13. UPTRAVI [Suspect]
     Active Substance: SELEXIPAG
     Dosage: 0.4 MG, BID
     Route: 048
     Dates: start: 20170403, end: 20170430
  14. ADCIRCA [Concomitant]
     Active Substance: TADALAFIL
     Indication: PULMONARY ARTERIAL HYPERTENSION
     Dosage: 40 MG, QD
     Dates: start: 20170529
  15. LOXONIN [Concomitant]
     Active Substance: LOXOPROFEN SODIUM
     Indication: HEADACHE
     Dosage: 60 MG, QD
     Dates: start: 20161219
  16. PL [Concomitant]
     Active Substance: ACETAMINOPHEN\CAFFEINE\PROMETHAZINE\SALICYLAMIDE
     Indication: NASOPHARYNGITIS
     Dosage: 3 G, QD
     Dates: start: 20161220, end: 20161227
  17. PL [Concomitant]
     Active Substance: ACETAMINOPHEN\CAFFEINE\PROMETHAZINE\SALICYLAMIDE
     Dates: start: 20180227, end: 20180305
  18. RESTAMIN [Concomitant]
     Active Substance: DIPHENHYDRAMINE
     Indication: RASH
     Dosage: 20 MG, QD
     Dates: start: 20170411
  19. ACUATIM [Concomitant]
     Active Substance: NADIFLOXACIN
     Indication: RASH
     Dosage: 20 MG, QD
     Dates: start: 20170411, end: 20180522
  20. PROTOPIC [Concomitant]
     Active Substance: TACROLIMUS
     Indication: PROPHYLAXIS
     Dosage: 25 G, QD
     Dates: start: 20180522
  21. HEPARINOID [Concomitant]
     Active Substance: CHONDROITIN SULFATE (BOVINE)
     Indication: PROPHYLAXIS
     Dosage: 25 G, QD
     Dates: start: 20180522
  22. DRENISON [FLUDROXYCORTIDE] [Concomitant]
     Active Substance: FLURANDRENOLIDE
     Indication: PROPHYLAXIS
     Dates: start: 20180821
  23. UPTRAVI [Suspect]
     Active Substance: SELEXIPAG
     Dosage: 0.6 MG, QD
     Route: 048
     Dates: start: 20170306, end: 20170402
  24. UPTRAVI [Suspect]
     Active Substance: SELEXIPAG
     Dosage: 0.8 MG, BID
     Route: 048
     Dates: start: 20170724, end: 20171022
  25. LASIX [Concomitant]
     Active Substance: FUROSEMIDE
     Indication: PROPHYLAXIS
     Dosage: 40 MG, QD
     Dates: start: 20051128
  26. BIO?THREE [Concomitant]
     Active Substance: HERBALS
     Indication: DIARRHOEA
     Dosage: 3 DF, QD
     Dates: start: 20170220, end: 20170905
  27. ALLELOCK [Concomitant]
     Active Substance: OLOPATADINE HYDROCHLORIDE
     Indication: RASH
     Dosage: 10 MG, QD
     Dates: start: 20170221, end: 20170323
  28. NERISONA [Concomitant]
     Active Substance: DIFLUCORTOLONE VALERATE
     Indication: RASH
     Dosage: 20 MG, QD
     Dates: start: 20170221, end: 20181113
  29. FULMETA [Concomitant]
     Active Substance: MOMETASONE
     Indication: RASH
     Dosage: 40 MG, QD
     Dates: start: 20170411
  30. MEDICON [DEXTROMETHORPHAN HYDROBROMIDE] [Concomitant]
     Active Substance: DEXTROMETHORPHAN HYDROBROMIDE
     Indication: NASOPHARYNGITIS
     Dosage: 30 MG, QD
     Dates: start: 20170606
  31. CEFDINIR. [Concomitant]
     Active Substance: CEFDINIR
     Indication: PNEUMONIA
     Dosage: 300 MG, QD
     Dates: start: 20170606, end: 20170611
  32. ATARAX?P [Concomitant]
     Active Substance: HYDROXYZINE HYDROCHLORIDE
     Indication: RASH
     Dosage: 25 MG, QD
     Dates: start: 20170627, end: 20170727
  33. PROTOPIC [Concomitant]
     Active Substance: TACROLIMUS
  34. SELARA [Concomitant]
     Active Substance: EPLERENONE
     Dosage: 50 MG, QD
     Dates: end: 20170306
  35. ARTIST [Concomitant]
     Active Substance: CARVEDILOL
     Dosage: 2.5 MG, QD
     Dates: start: 20060522, end: 20170306
  36. PARIET [Concomitant]
     Active Substance: RABEPRAZOLE SODIUM
     Indication: GASTRIC ULCER
     Dosage: 10 MG, QD
     Dates: start: 20080108
  37. LOXONIN [Concomitant]
     Active Substance: LOXOPROFEN SODIUM
     Indication: MYALGIA
     Dosage: 100 MG, QD
     Dates: start: 20161220
  38. MUCOSTA [Concomitant]
     Active Substance: REBAMIPIDE
     Indication: PROPHYLAXIS
     Dosage: 100 MG, QD
     Dates: start: 20161219
  39. FLOMOX [Concomitant]
     Indication: NASOPHARYNGITIS
     Dosage: 300 MG, QD
     Dates: start: 20161220
  40. NEOMALLERMIN TR [Concomitant]
     Indication: RASH
     Dosage: 6 MG, QD
     Dates: start: 20170221, end: 20170314
  41. DOMPERIDONE [Concomitant]
     Active Substance: DOMPERIDONE
     Indication: NAUSEA
     Dosage: 10 MG, QD
     Dates: start: 20171225, end: 20190107
  42. UPTRAVI [Suspect]
     Active Substance: SELEXIPAG
     Indication: PULMONARY ARTERIAL HYPERTENSION
     Dosage: 0.2 MG, BID
     Route: 048
     Dates: start: 20161208, end: 20161225
  43. UPTRAVI [Suspect]
     Active Substance: SELEXIPAG
     Dosage: 0.6 MG, BID
     Route: 048
     Dates: start: 20170501, end: 20170508
  44. UPTRAVI [Suspect]
     Active Substance: SELEXIPAG
     Dosage: 2.2 MG, QD
     Route: 048
     Dates: start: 20180416, end: 20180902
  45. REVATIO [Concomitant]
     Active Substance: SILDENAFIL CITRATE
     Indication: PULMONARY ARTERIAL HYPERTENSION
     Dosage: 60 MG, QD
     Dates: start: 20100324, end: 20170529
  46. BLOPRESS [Concomitant]
     Active Substance: CANDESARTAN CILEXETIL
     Dosage: 4 MG, QD
     Dates: start: 20060104, end: 20170306
  47. DEXALTIN [Concomitant]
     Active Substance: DEXAMETHASONE
     Dates: start: 2018, end: 20181112
  48. SUMILU [Concomitant]
     Active Substance: FELBINAC
     Indication: MYALGIA
     Dosage: 40 MG, QD
     Dates: start: 20180227, end: 20180522
  49. UPTRAVI [Suspect]
     Active Substance: SELEXIPAG
     Dosage: 1 MG, QD
     Route: 048
     Dates: start: 20170509, end: 20170528
  50. UPTRAVI [Suspect]
     Active Substance: SELEXIPAG
     Route: 048
     Dates: start: 20180903
  51. OPSUMIT [Concomitant]
     Active Substance: MACITENTAN
     Indication: PULMONARY ARTERIAL HYPERTENSION
     Dosage: 10 MG, QD
     Route: 048
     Dates: start: 20160613
  52. FEBURIC [Concomitant]
     Active Substance: FEBUXOSTAT
     Indication: HYPERURICAEMIA
     Dosage: 40 MG, QD
     Dates: start: 20161220

REACTIONS (11)
  - Pneumonia [Recovered/Resolved]
  - Pain in jaw [Recovered/Resolved]
  - Rash [Recovered/Resolved]
  - Pain in extremity [Recovered/Resolved]
  - Nausea [Recovered/Resolved]
  - Stomatitis [Recovered/Resolved]
  - Headache [Not Recovered/Not Resolved]
  - Diarrhoea [Recovered/Resolved]
  - Plantar fasciitis [Not Recovered/Not Resolved]
  - Nasopharyngitis [Recovered/Resolved]
  - Pain [Recovered/Resolved]

NARRATIVE: CASE EVENT DATE: 20161210
